FAERS Safety Report 8633724 (Version 5)
Quarter: 2013Q4

REPORT INFORMATION
  Report Type: Report from Study
  Country: CA (occurrence: CA)
  Receive Date: 20120625
  Receipt Date: 20131010
  Transmission Date: 20140711
  Serious: Yes (Hospitalization)
  Sender: FDA-Public Use
  Company Number: CA-JNJFOC-20120611250

PATIENT
  Age: 51 Year
  Sex: Male
  Weight: 83.92 kg

DRUGS (1)
  1. STELARA [Suspect]
     Indication: PSORIASIS
     Route: 058
     Dates: start: 20101008

REACTIONS (1)
  - Pneumonia [Recovered/Resolved with Sequelae]
